FAERS Safety Report 5125620-0 (Version None)
Quarter: 2006Q4

REPORT INFORMATION
  Report Type: 
  Country: None (occurrence: None)
  Receive Date: 20061006
  Receipt Date: 20060920
  Transmission Date: 20070319
  Serious: Yes (Hospitalization, Disabling)
  Sender: FDA-Public Use
  Company Number: REM_00238_2006

PATIENT
  Age: 5 Year
  Sex: Female
  Weight: 15 kg

DRUGS (5)
  1. REMODULIN [Suspect]
     Indication: PULMONARY HYPERTENSION
     Dosage: 69 NG/KG/MIN CONTINUOUS IV
     Route: 042
     Dates: start: 20040913
  2. REVATIO [Concomitant]
  3. COUMADIN [Concomitant]
  4. MULTI-VITAMIN [Concomitant]
  5. FLONASE [Concomitant]

REACTIONS (3)
  - ACID FAST BACILLI INFECTION [None]
  - CATHETER RELATED INFECTION [None]
  - MYCOBACTERIUM FORTUITUM INFECTION [None]
